FAERS Safety Report 5598279-6 (Version None)
Quarter: 2008Q1

REPORT INFORMATION
  Report Type: 
  Country: None (occurrence: None)
  Receive Date: 20080117
  Receipt Date: 20080117
  Transmission Date: 20080703
  Serious: Yes (Hospitalization, Other)
  Sender: FDA-Public Use
  Company Number: None

PATIENT
  Sex: Female

DRUGS (7)
  1. REVLIMID [Suspect]
     Indication: MYELODYSPLASTIC SYNDROME
     Dosage: 10MG DAILY PO
     Route: 048
     Dates: start: 20070905, end: 20071021
  2. REVLIMID [Suspect]
     Indication: MYELODYSPLASTIC SYNDROME
     Dosage: 5MG DAILY PO
     Route: 048
     Dates: start: 20071116, end: 20071205
  3. METOPROLOL TARTRATE [Concomitant]
  4. LEVOTHROID [Concomitant]
  5. VYTORIN [Concomitant]
  6. METFORMIN HCL [Concomitant]
  7. PROCRIT [Concomitant]

REACTIONS (3)
  - PANCYTOPENIA [None]
  - PRESYNCOPE [None]
  - SYNCOPE [None]
